FAERS Safety Report 9940880 (Version 3)
Quarter: 2014Q2

REPORT INFORMATION
  Report Type: Spontaneous
  Country: US (occurrence: US)
  Receive Date: 20140303
  Receipt Date: 20140617
  Transmission Date: 20141212
  Serious: Yes (Other)
  Sender: FDA-Public Use
  Company Number: US-PFIZER INC-2014057024

PATIENT
  Age: 41 Year
  Sex: Female

DRUGS (2)
  1. CHANTIX [Suspect]
     Dosage: STARTING MONTH PACK, AS DIRECTED
     Dates: start: 20110226
  2. CHANTIX [Suspect]
     Dosage: CONTINUE MONTH PACK, AS DIRECTED
     Dates: start: 20110922, end: 20111220

REACTIONS (1)
  - Suicide attempt [Unknown]
